FAERS Safety Report 13134334 (Version 1)
Quarter: 2017Q1

REPORT INFORMATION
  Report Type: Spontaneous
  Country: NL (occurrence: NL)
  Receive Date: 20170120
  Receipt Date: 20170120
  Transmission Date: 20170428
  Serious: Yes (Other)
  Sender: FDA-Public Use
  Company Number: NL-TEVA-731973ROM

PATIENT
  Age: 67 Year
  Sex: Male

DRUGS (1)
  1. GEMCITABINE ACTAVIS 40 MG/ML ALCOHOLVRIJ, CONCENTRAAT VOOR OPLOSSING V [Suspect]
     Active Substance: GEMCITABINE\GEMCITABINE HYDROCHLORIDE
     Indication: PANCREATIC CARCINOMA
     Route: 042
     Dates: start: 201607

REACTIONS (4)
  - Leukopenia [Unknown]
  - Hepatic enzyme abnormal [Unknown]
  - Metastasis [Unknown]
  - Infusion site pain [Unknown]

NARRATIVE: CASE EVENT DATE: 20160824
